FAERS Safety Report 7529944-9 (Version None)
Quarter: 2011Q2

REPORT INFORMATION
  Report Type: 
  Country: None (occurrence: None)
  Receive Date: 20110607
  Receipt Date: 20110523
  Transmission Date: 20111010
  Serious: Yes (Death, Hospitalization)
  Sender: FDA-Public Use
  Company Number: PT-WATSON-2011-07243

PATIENT
  Age: 17 Year
  Sex: Male

DRUGS (12)
  1. TACROLIMUS [Suspect]
     Indication: ACUTE GRAFT VERSUS HOST DISEASE IN INTESTINE
  2. FLUCONAZOLE [Suspect]
     Indication: ANTIFUNGAL PROPHYLAXIS
     Dosage: 400 MG, DAILY
  3. CLINDAMYCIN HCL [Suspect]
     Indication: PYREXIA
     Dosage: UNK
  4. PIPERACILLIN AND TAZOBACTAM [Suspect]
     Indication: FEBRILE NEUTROPENIA
     Dosage: UNK
  5. AMIKACIN [Suspect]
     Indication: FEBRILE NEUTROPENIA
     Dosage: UNK
  6. VORICONAZOLE [Suspect]
     Indication: PULMONARY CAVITATION
     Dosage: UNK
  7. METHOTREXATE [Suspect]
     Indication: PROPHYLAXIS AGAINST TRANSPLANT REJECTION
     Dosage: UNK
  8. TACROLIMUS [Suspect]
     Indication: PROPHYLAXIS AGAINST GRAFT VERSUS HOST DISEASE
     Dosage: UNK
  9. PREDNISONE [Suspect]
     Indication: GRAFT VERSUS HOST DISEASE
     Dosage: 1 MG/KG, BID
  10. CASPOFUNGIN ACETATE [Suspect]
     Indication: FUNGAL INFECTION
     Dosage: UNK
  11. POSACONAZOLE [Suspect]
     Indication: PROPHYLAXIS
     Dosage: 200 MG, TID
  12. AMPHOTERICIN B [Suspect]
     Indication: FUNGAL INFECTION
     Dosage: UNK

REACTIONS (6)
  - ENCEPHALITIS FUNGAL [None]
  - LEUKOPENIA [None]
  - GRAFT VERSUS HOST DISEASE [None]
  - RESPIRATORY TRACT INFECTION FUNGAL [None]
  - FEBRILE NEUTROPENIA [None]
  - DRUG INEFFECTIVE [None]
